FAERS Safety Report 8420762-6 (Version None)
Quarter: 2012Q2

REPORT INFORMATION
  Report Type: 
  Country: None (occurrence: None)
  Receive Date: 20120608
  Receipt Date: 20120606
  Transmission Date: 20120825
  Serious: No
  Sender: FDA-Public Use
  Company Number: US-PFIZER INC-2012137104

PATIENT
  Sex: Female

DRUGS (7)
  1. MOBIC [Concomitant]
     Indication: ARTHRALGIA
     Dosage: UNK
  2. LYRICA [Suspect]
     Indication: ARTHRALGIA
     Dosage: 25 MG, UNK
  3. LYRICA [Suspect]
     Indication: NECK PAIN
  4. METOPROLOL [Concomitant]
     Indication: BLOOD PRESSURE ABNORMAL
     Dosage: UNK
  5. LYRICA [Suspect]
     Indication: FIBROMYALGIA
     Dosage: 50 MG, UNK
  6. LYRICA [Suspect]
     Indication: BACK PAIN
  7. DIOVAN HCT [Concomitant]
     Indication: BLOOD PRESSURE ABNORMAL
     Dosage: UNK

REACTIONS (2)
  - DRUG INEFFECTIVE [None]
  - FLUID RETENTION [None]
